FAERS Safety Report 4319361-7 (Version None)
Quarter: 2004Q1

REPORT INFORMATION
  Report Type: 
  Country: None (occurrence: None)
  Receive Date: 20040316
  Receipt Date: 20040305
  Transmission Date: 20041129
  Serious: Yes (Life-Threatening, Hospitalization, Disabling)
  Sender: FDA-Public Use
  Company Number: JP-JNJFOC-20040301318

PATIENT
  Age: 71 Year
  Sex: Female

DRUGS (3)
  1. LEVOFLOXACIN [Suspect]
     Indication: LOWER RESPIRATORY TRACT INFECTION
     Dosage: 500 MG, 1 IN 1 DAY, ORAL
     Route: 048
     Dates: start: 20040126
  2. PYRIDOSTIGMINE (PYRIDOSTIGMINE) [Concomitant]
  3. PREDNISOLONE [Concomitant]

REACTIONS (2)
  - DYSPNOEA [None]
  - MYASTHENIA GRAVIS [None]
